FAERS Safety Report 9852055 (Version 8)
Quarter: 2018Q4

REPORT INFORMATION
  Report Type: Spontaneous
  Country: US (occurrence: US)
  Receive Date: 20140129
  Receipt Date: 20181123
  Transmission Date: 20190205
  Serious: No
  Sender: FDA-Public Use
  Company Number: US-PFIZER INC-2014020937

PATIENT
  Sex: Female
  Weight: 101 kg

DRUGS (17)
  1. CATAFLAM [Suspect]
     Active Substance: DICLOFENAC POTASSIUM
     Dosage: UNK
  2. DICLOFENAC SODIUM. [Suspect]
     Active Substance: DICLOFENAC SODIUM
     Dosage: UNK
  3. ERYTHROMYCIN BASE [Suspect]
     Active Substance: ERYTHROMYCIN
     Dosage: UNK
  4. OXYCONTIN [Suspect]
     Active Substance: OXYCODONE HYDROCHLORIDE
     Dosage: UNK
  5. PROCINONIDE [Suspect]
     Active Substance: PROCINONIDE
     Dosage: UNK
  6. OXYCODONE [Suspect]
     Active Substance: OXYCODONE
     Dosage: UNK
  7. MORPHINE SULFATE. [Suspect]
     Active Substance: MORPHINE SULFATE
     Dosage: UNK
  8. CEFTIN [Suspect]
     Active Substance: CEFUROXIME AXETIL
     Dosage: UNK
  9. VIOXX [Suspect]
     Active Substance: ROFECOXIB
     Dosage: UNK
  10. AZITHROMYCIN ANHYDROUS. [Suspect]
     Active Substance: AZITHROMYCIN ANHYDROUS
     Dosage: UNK
  11. FLUOCINOLONE [Suspect]
     Active Substance: FLUOCINOLONE
     Dosage: UNK
  12. CEFUROXIME. [Suspect]
     Active Substance: CEFUROXIME
     Dosage: UNK
  13. DOXYCYCLINE HYCLATE. [Suspect]
     Active Substance: DOXYCYCLINE HYCLATE
     Dosage: UNK
  14. ROFECOXIB [Suspect]
     Active Substance: ROFECOXIB
     Dosage: UNK
  15. CIPROCINONIDE [Suspect]
     Active Substance: CIPROCINONIDE
     Dosage: UNK
  16. FLUOCINONIDE. [Suspect]
     Active Substance: FLUOCINONIDE
     Dosage: UNK
  17. ERYTHROMYCIN. [Suspect]
     Active Substance: ERYTHROMYCIN
     Dosage: UNK

REACTIONS (1)
  - Drug hypersensitivity [Unknown]
